FAERS Safety Report 9956778 (Version 1)
Quarter: 2014Q1

REPORT INFORMATION
  Report Type: Report from Study
  Country: US (occurrence: US)
  Receive Date: 20140304
  Receipt Date: 20140304
  Transmission Date: 20141002
  Serious: No
  Sender: FDA-Public Use
  Company Number: US-ABBVIE-13P-163-1098880-00

PATIENT
  Age: 56 Year
  Sex: Male

DRUGS (14)
  1. HUMIRA [Suspect]
     Indication: PSORIASIS
     Dates: start: 20130514, end: 20130514
  2. HUMIRA [Suspect]
     Dates: start: 20130521
  3. FISH OIL [Concomitant]
     Indication: BLOOD CHOLESTEROL INCREASED
  4. NEURONTIN [Concomitant]
     Indication: MUSCULOSKELETAL DISORDER
  5. LANTUS [Concomitant]
     Indication: DIABETES MELLITUS
     Dosage: AT NIGHT TIME
     Route: 058
  6. REGULAR INSULIN NOVO NORDISK [Concomitant]
     Indication: DIABETES MELLITUS
     Dosage: THREE TIMES A DAY PRIOR TO MEALS
     Route: 058
  7. METFORMIN [Concomitant]
     Indication: DIABETES MELLITUS
  8. OMEPRAZOLE [Concomitant]
     Indication: GASTRIC DISORDER
     Dosage: 20 MG DAILY
  9. ASA [Concomitant]
     Indication: PRODUCT USED FOR UNKNOWN INDICATION
     Dosage: 81 MG DAILY
  10. DOCUSATE SODIUM [Concomitant]
     Indication: CONSTIPATION
  11. LOVASTATIN [Concomitant]
     Indication: BLOOD CHOLESTEROL
     Dosage: 50 MG DAILY
  12. COREG [Concomitant]
     Indication: HYPERTENSION
     Dosage: 2.5 MG DAILY
  13. HYDROCHLOROTHIAZIDE [Concomitant]
     Indication: HYPERTENSION
     Dosage: DAILY
  14. CREAM (DID NOT PROVIDE NAME) [Concomitant]
     Indication: PSORIASIS

REACTIONS (2)
  - Feeling hot [Recovering/Resolving]
  - Injection site bruising [Recovering/Resolving]
